FAERS Safety Report 8287104-0 (Version None)
Quarter: 2012Q2

REPORT INFORMATION
  Report Type: 
  Country: None (occurrence: None)
  Receive Date: 20120416
  Receipt Date: 20120409
  Transmission Date: 20120825
  Serious: Yes (Hospitalization)
  Sender: FDA-Public Use
  Company Number: US-AMGEN-USASP2011030798

PATIENT
  Age: 60 Year
  Sex: Male

DRUGS (2)
  1. ALLOPURINOL [Concomitant]
     Dosage: UNK
  2. ENBREL [Suspect]
     Indication: PSORIASIS
     Dosage: 50 MG, QWK
     Route: 058
     Dates: start: 20101001

REACTIONS (12)
  - DYSPLASTIC NAEVUS [None]
  - CORONARY ARTERY OCCLUSION [None]
  - STENT PLACEMENT [None]
  - MACULE [None]
  - HYPOAESTHESIA [None]
  - INJECTION SITE PAIN [None]
  - SKIN DISCOLOURATION [None]
  - NAUSEA [None]
  - ARTHROPOD BITE [None]
  - NEPHROLITHIASIS [None]
  - PAIN [None]
  - PSORIASIS [None]
